FAERS Safety Report 4831094-7 (Version None)
Quarter: 2005Q4

REPORT INFORMATION
  Report Type: 
  Country: None (occurrence: None)
  Receive Date: 20051114
  Receipt Date: 20051103
  Transmission Date: 20060501
  Serious: Yes (Hospitalization)
  Sender: FDA-Public Use
  Company Number: 2005ADE/CIPRO-011

PATIENT
  Age: 52 Year
  Sex: Female

DRUGS (1)
  1. DICLOFENAC 500MG [Suspect]
     Indication: TOOTHACHE
     Dosage: ORAL
     Route: 048

REACTIONS (5)
  - BRADYCARDIA [None]
  - DEPRESSED LEVEL OF CONSCIOUSNESS [None]
  - FATIGUE [None]
  - HEART RATE DECREASED [None]
  - PULPITIS DENTAL [None]
